FAERS Safety Report 25801816 (Version 1)
Quarter: 2025Q3

REPORT INFORMATION
  Report Type: Spontaneous
  Country: CA (occurrence: CA)
  Receive Date: 20250915
  Receipt Date: 20250915
  Transmission Date: 20251021
  Serious: Yes (Disabling, Other)
  Sender: HIKMA
  Company Number: CA-HIKMA PHARMACEUTICALS USA INC.-CA-H14001-25-10141

PATIENT
  Age: 77 Year
  Sex: Female

DRUGS (2)
  1. GENTAMICIN [Suspect]
     Active Substance: GENTAMICIN
     Indication: Urinary tract infection
     Dosage: 340 MILLIGRAM, QD
     Route: 042
  2. FOSFOMYCIN [Concomitant]
     Active Substance: FOSFOMYCIN
     Indication: Product used for unknown indication
     Route: 048

REACTIONS (4)
  - Balance disorder [Unknown]
  - Cholesteatoma [Unknown]
  - Dizziness [Unknown]
  - Headache [Unknown]
